FAERS Safety Report 10044757 (Version 1)
Quarter: 2014Q1

REPORT INFORMATION
  Report Type: Spontaneous
  Country: ES (occurrence: None)
  Receive Date: 20140326
  Receipt Date: 20140326
  Transmission Date: 20141002
  Serious: Yes (Other)
  Sender: FDA-Public Use
  Company Number: AUR-APL-2014-03752

PATIENT
  Age: 40 Year
  Sex: Female
  Weight: 42.5 kg

DRUGS (4)
  1. ESCITALOPRAM (ESCITALOPRAM) [Suspect]
     Indication: DEPRESSION
     Dosage: (20 MG), UNKNOWN
     Dates: start: 2011, end: 2014
  2. CHAMPIX (VARENICLINE TARTRATE) [Suspect]
     Indication: SMOKING CESSATION THERAPY
     Dosage: 1 MG (0.5 MG, 2 IN 1 D), ORAL
     Route: 048
     Dates: start: 20140307, end: 20140312
  3. HALCION (TRIAZOLAM) [Concomitant]
  4. DIAZEPAM (DIAZEPAM) [Concomitant]

REACTIONS (7)
  - Drug interaction [None]
  - Dizziness [None]
  - Vertigo [None]
  - Dysstasia [None]
  - Impaired work ability [None]
  - Diarrhoea [None]
  - Impaired driving ability [None]
